FAERS Safety Report 7370495-2 (Version None)
Quarter: 2011Q1

REPORT INFORMATION
  Report Type: 
  Country: None (occurrence: None)
  Receive Date: 20110323
  Receipt Date: 20081103
  Transmission Date: 20110831
  Serious: Yes (Hospitalization, Other)
  Sender: FDA-Public Use
  Company Number: US-BAYER-200837861NA

PATIENT
  Sex: Male
  Weight: 93 kg

DRUGS (30)
  1. TRASYLOL [Suspect]
     Indication: AORTIC VALVE REPLACEMENT
     Dosage: 1 ML TEST DOSE
     Dates: start: 20060803, end: 20060803
  2. RANEXA [Concomitant]
     Dosage: 500 MG, UNK
     Route: 048
  3. IMDUR [Concomitant]
     Route: 048
  4. LIDOCAINE [Concomitant]
     Route: 042
  5. LASIX [Concomitant]
     Route: 042
  6. AMIODARONE HCL [Concomitant]
     Dosage: 150 MG, UNK
     Route: 042
  7. OXACILLIN [Concomitant]
  8. CONTRAST MEDIA [Concomitant]
     Dosage: UNK
  9. LOPRESSOR [Concomitant]
     Dosage: 50 MG, BID
     Route: 048
  10. LIPITOR [Concomitant]
  11. FLOMAX [Concomitant]
     Route: 048
  12. CALCIUM CHLORIDE [Concomitant]
     Dosage: 1 G, UNK
     Route: 042
  13. NOVOLIN R [Concomitant]
     Route: 042
  14. TRASYLOL [Suspect]
     Indication: VASCULAR GRAFT
     Dosage: 50 ML/HR
     Route: 042
     Dates: start: 20060803, end: 20060803
  15. TRASYLOL [Suspect]
     Indication: MITRAL VALVE REPAIR
     Dosage: 200 ML LOADING DOSE
     Dates: start: 20060803, end: 20060803
  16. SYNTHROID [Concomitant]
     Route: 048
  17. VANCOMYCIN [Concomitant]
  18. MAXIPIME [Concomitant]
  19. LANTUS [Concomitant]
     Dosage: INJECTION
  20. ROBINUL [Concomitant]
     Dosage: 02 MG, UNK
     Route: 042
  21. MIDAZOLAM [Concomitant]
     Dosage: 2 MG, UNK
     Route: 042
  22. RED BLOOD CELLS [Concomitant]
     Dosage: 3 U, UNK
     Dates: start: 20060803
  23. SODIUM BICARBONATE [Concomitant]
     Dosage: 1AMP IV
     Route: 042
  24. CONTRAST MEDIA [Concomitant]
     Dosage: UNK
     Dates: start: 20060714, end: 20060714
  25. PRAVASTATIN [Concomitant]
     Route: 048
  26. BETHANECHOL [Concomitant]
     Route: 048
  27. HEPARIN [Concomitant]
     Dosage: 30000 U, UNK
  28. PLASMA [Concomitant]
     Dosage: 2 U, UNK
     Dates: start: 20060803
  29. CONTRAST MEDIA [Concomitant]
     Indication: CATHETERISATION CARDIAC
     Dosage: UNK
     Dates: start: 20060711, end: 20060711
  30. CONTRAST MEDIA [Concomitant]
     Indication: COMPUTERISED TOMOGRAM
     Dosage: UNK
     Dates: start: 20060710, end: 20060710

REACTIONS (7)
  - INJURY [None]
  - RENAL FAILURE [None]
  - EMOTIONAL DISTRESS [None]
  - UNEVALUABLE EVENT [None]
  - RENAL INJURY [None]
  - ANXIETY [None]
  - PAIN [None]
